FAERS Safety Report 7881456-9 (Version None)
Quarter: 2011Q4

REPORT INFORMATION
  Report Type: 
  Country: None (occurrence: None)
  Receive Date: 20111101
  Receipt Date: 20111028
  Transmission Date: 20120403
  Serious: Yes (Death)
  Sender: FDA-Public Use
  Company Number: FR-GILEAD-2011-0046015

PATIENT

DRUGS (1)
  1. VIREAD [Suspect]
     Indication: HEPATITIS B
     Route: 064

REACTIONS (2)
  - INTRA-UTERINE DEATH [None]
  - MATERNAL DRUGS AFFECTING FOETUS [None]
